FAERS Safety Report 10410949 (Version 1)
Quarter: 2014Q2

REPORT INFORMATION
  Report Type: Spontaneous
  Country: US (occurrence: None)
  Receive Date: 20140604
  Receipt Date: 20140604
  Transmission Date: 20141212
  Serious: Yes (Other)
  Sender: FDA-Public Use
  Company Number: 20100528CINRY1505

PATIENT
  Sex: Male

DRUGS (2)
  1. CINRYZE [Suspect]
     Indication: HEREDITARY ANGIOEDEMA
     Route: 042
  2. CINRYZE [Suspect]
     Indication: PROPHYLAXIS
     Route: 042

REACTIONS (5)
  - Hereditary angioedema [None]
  - Angioedema [None]
  - Drug effect decreased [None]
  - Gastrointestinal disorder [None]
  - Laryngeal disorder [None]
